FAERS Safety Report 4974702-2 (Version None)
Quarter: 2006Q1

REPORT INFORMATION
  Report Type: 
  Country: None (occurrence: None)
  Receive Date: 20060216
  Receipt Date: 20051102
  Transmission Date: 20060701
  Serious: Yes (Hospitalization)
  Sender: FDA-Public Use
  Company Number: PHEH2005US12119

PATIENT
  Age: 59 Year
  Sex: Female

DRUGS (2)
  1. GLEEVEC [Suspect]
     Indication: GASTROINTESTINAL STROMAL TUMOUR
     Dosage: 400 MG, QD, ORAL; 800 MG, QD, ORAL
     Route: 048
     Dates: start: 20050801, end: 20051001
  2. GLEEVEC [Suspect]
     Indication: GASTROINTESTINAL STROMAL TUMOUR
     Dosage: 400 MG, QD, ORAL; 800 MG, QD, ORAL
     Route: 048
     Dates: start: 20051001

REACTIONS (4)
  - ASCITES [None]
  - NAUSEA [None]
  - PARACENTESIS [None]
  - VOMITING [None]
